FAERS Safety Report 5024322-9 (Version None)
Quarter: 2006Q2

REPORT INFORMATION
  Report Type: 
  Country: None (occurrence: None)
  Receive Date: 20060608
  Receipt Date: 20060608
  Transmission Date: 20061013
  Serious: Yes (Death)
  Sender: FDA-Public Use
  Company Number: None

PATIENT
  Sex: Male
  Weight: 82 kg

DRUGS (1)
  1. VERSED [Suspect]
     Indication: SEDATIVE THERAPY
     Dosage: 1 MG [ONE DOSE  ONLY]
     Dates: start: 20060126, end: 20060126

REACTIONS (12)
  - BRONCHIAL OBSTRUCTION [None]
  - COUGH [None]
  - HYPOXIA [None]
  - INCREASED VISCOSITY OF BRONCHIAL SECRETION [None]
  - LUNG ADENOCARCINOMA METASTATIC [None]
  - METASTASES TO LYMPH NODES [None]
  - OXYGEN SATURATION DECREASED [None]
  - PLEURAL EFFUSION [None]
  - PNEUMONIA [None]
  - PROCEDURAL COMPLICATION [None]
  - RESPIRATORY ARREST [None]
  - RESPIRATORY FAILURE [None]
